FAERS Safety Report 25014837 (Version 1)
Quarter: 2025Q1

REPORT INFORMATION
  Report Type: Spontaneous
  Country: FR (occurrence: FR)
  Receive Date: 20250226
  Receipt Date: 20250226
  Transmission Date: 20250409
  Serious: Yes (Other)
  Sender: TEVA
  Company Number: None

PATIENT
  Age: 74 Year
  Sex: Female

DRUGS (2)
  1. LEVOFLOXACIN [Suspect]
     Active Substance: LEVOFLOXACIN
     Indication: Post procedural infection
     Dosage: 1 AND 1/2 TABLETS OF 500 MG/DAY (FOR 12 WEEKS)
     Route: 048
     Dates: start: 20241230
  2. RIFABUTIN [Suspect]
     Active Substance: RIFABUTIN
     Indication: Post procedural infection
     Dosage: 150 MG X 2/DAY
     Route: 048
     Dates: start: 20241230

REACTIONS (1)
  - Hepatic cytolysis [Unknown]

NARRATIVE: CASE EVENT DATE: 20250120
